FAERS Safety Report 9070423 (Version 1)
Quarter: 2013Q1

REPORT INFORMATION
  Report Type: Report from Study
  Country: US (occurrence: US)
  Receive Date: 20130128
  Receipt Date: 20130128
  Transmission Date: 20140127
  Serious: No
  Sender: FDA-Public Use
  Company Number: US-ABBOTT-12P-163-0891030-00

PATIENT
  Age: 64 None
  Sex: Male

DRUGS (18)
  1. HUMIRA 40 MG/ 0.8 ML PRE-FILLED SYRINGE [Suspect]
     Indication: PSORIASIS
     Route: 058
     Dates: start: 2006, end: 201006
  2. HUMIRA 40 MG/ 0.8 ML PRE-FILLED SYRINGE [Suspect]
     Route: 058
     Dates: start: 2010
  3. DOVONEX [Concomitant]
     Indication: PSORIASIS
     Route: 061
  4. SPIRIVA [Concomitant]
     Indication: CHRONIC OBSTRUCTIVE PULMONARY DISEASE
     Route: 055
  5. ADVAIR [Concomitant]
     Indication: CHRONIC OBSTRUCTIVE PULMONARY DISEASE
     Route: 055
  6. VENTOLIN [Concomitant]
     Indication: CHRONIC OBSTRUCTIVE PULMONARY DISEASE
     Route: 055
  7. METFORMIN HCL [Concomitant]
     Indication: TYPE 2 DIABETES MELLITUS
  8. LOSARTAN [Concomitant]
     Indication: HYPERTENSION
  9. PRISTIQ [Concomitant]
     Indication: DEPRESSION
  10. LEVOTHYROXINE [Concomitant]
     Indication: HYPOTHYROIDISM
  11. SINGULAIR [Concomitant]
     Indication: SEASONAL ALLERGY
  12. INDAPAMIDE [Concomitant]
     Indication: HYPERTENSION
  13. SOMA [Concomitant]
     Indication: PRODUCT USED FOR UNKNOWN INDICATION
  14. MIRAPEX [Concomitant]
     Indication: RESTLESS LEGS SYNDROME
  15. HYDROXYZINE [Concomitant]
     Indication: INSOMNIA
  16. FLONASE [Concomitant]
     Indication: SEASONAL ALLERGY
  17. MIRAPEX [Concomitant]
     Indication: MIGRAINE
  18. CLONAZEPAM [Concomitant]
     Indication: INSOMNIA

REACTIONS (9)
  - Psoriasis [Recovering/Resolving]
  - Road traffic accident [Recovered/Resolved]
  - Skin induration [Recovered/Resolved]
  - Memory impairment [Recovering/Resolving]
  - Arthralgia [Recovering/Resolving]
  - Chest pain [Recovering/Resolving]
  - Pain in extremity [Not Recovered/Not Resolved]
  - Ligament sprain [Recovering/Resolving]
  - Amnesia [Recovering/Resolving]
